FAERS Safety Report 10188361 (Version 1)
Quarter: 2014Q2

REPORT INFORMATION
  Report Type: Spontaneous
  Country: US (occurrence: None)
  Receive Date: 20140521
  Receipt Date: 20140521
  Transmission Date: 20141212
  Serious: Yes (Other)
  Sender: FDA-Public Use
  Company Number: None

PATIENT
  Age: 63 Year
  Sex: Female
  Weight: 61.24 kg

DRUGS (1)
  1. PROLIA [Suspect]
     Indication: BONE DENSITY DECREASED
     Dosage: 60MG, EVERY 6 MONTH, INTO THE MUSCLE

REACTIONS (5)
  - Paraesthesia [None]
  - Hypoaesthesia [None]
  - Gait disturbance [None]
  - Insomnia [None]
  - Activities of daily living impaired [None]
